FAERS Safety Report 8556975-2 (Version None)
Quarter: 2012Q3

REPORT INFORMATION
  Report Type: 
  Country: None (occurrence: None)
  Receive Date: 20120801
  Receipt Date: 20120724
  Transmission Date: 20120928
  Serious: Yes (Hospitalization)
  Sender: FDA-Public Use
  Company Number: US-BAYER-2012-032699

PATIENT
  Age: 40 Year
  Sex: Female

DRUGS (8)
  1. VITAMIN D [Concomitant]
     Dosage: UNK UNK, BID
     Route: 048
  2. IRON [Concomitant]
     Indication: ANAEMIA
     Dosage: UNK
  3. IRON + VITAMIN C [Concomitant]
     Dosage: UNK UNK, TID
     Route: 048
  4. YAZ [Suspect]
     Dosage: UNK
     Dates: end: 20090327
  5. IBUPROFEN [Concomitant]
     Dosage: UNK UNK, PRN
     Route: 048
  6. YASMIN [Suspect]
     Dosage: UNK
     Dates: start: 20060901, end: 20080801
  7. FERRLECIT [Concomitant]
     Dosage: UNK
     Route: 042
     Dates: start: 20090316
  8. DROSPIRENONE AND ETHINYL ESTRADIOL [Suspect]
     Dosage: UNK
     Dates: start: 20080801, end: 20090301

REACTIONS (7)
  - GENERAL PHYSICAL HEALTH DETERIORATION [None]
  - EMOTIONAL DISTRESS [None]
  - PULMONARY EMBOLISM [None]
  - INJURY [None]
  - PAIN [None]
  - ANXIETY [None]
  - DEEP VEIN THROMBOSIS [None]
